FAERS Safety Report 16410131 (Version 2)
Quarter: 2019Q3

REPORT INFORMATION
  Report Type: Spontaneous
  Country: US (occurrence: US)
  Receive Date: 20190610
  Receipt Date: 20190708
  Transmission Date: 20191004
  Serious: Yes (Hospitalization, Other)
  Sender: FDA-Public Use
  Company Number: US-OTSUKA-2018_025352

PATIENT
  Age: 63 Year
  Sex: Male
  Weight: 72.56 kg

DRUGS (4)
  1. PROXALIN [Concomitant]
     Indication: PRODUCT USED FOR UNKNOWN INDICATION
     Dosage: UNK
     Route: 065
  2. ABILIFY [Suspect]
     Active Substance: ARIPIPRAZOLE
     Indication: BIPOLAR DISORDER
     Dosage: 10 MG, QD
     Route: 065
     Dates: start: 200801, end: 201607
  3. DEPAKOTE [Concomitant]
     Active Substance: DIVALPROEX SODIUM
     Indication: PRODUCT USED FOR UNKNOWN INDICATION
     Dosage: 500 MG, BID
     Route: 048
  4. BENADRYL [Concomitant]
     Active Substance: DIPHENHYDRAMINE HYDROCHLORIDE
     Indication: PRODUCT USED FOR UNKNOWN INDICATION
     Dosage: UNK
     Route: 065

REACTIONS (12)
  - Obsessive-compulsive disorder [Recovered/Resolved]
  - Homeless [Unknown]
  - Economic problem [Unknown]
  - Compulsive hoarding [Recovered/Resolved]
  - Compulsive shopping [Recovered/Resolved]
  - Bankruptcy [Unknown]
  - Product dose omission [Unknown]
  - Suicidal ideation [Unknown]
  - Paranoia [Unknown]
  - Mental disorder [Unknown]
  - Sexual dysfunction [Recovered/Resolved]
  - Gambling disorder [Recovered/Resolved]

NARRATIVE: CASE EVENT DATE: 2008
